FAERS Safety Report 10377620 (Version 3)
Quarter: 2014Q3

REPORT INFORMATION
  Report Type: Spontaneous
  Country: JP (occurrence: JP)
  Receive Date: 20140812
  Receipt Date: 20140922
  Transmission Date: 20150326
  Serious: Yes (Hospitalization)
  Sender: FDA-Public Use
  Company Number: PHHY2014JP099079

PATIENT

DRUGS (1)
  1. FEMARA [Suspect]
     Active Substance: LETROZOLE
     Indication: BREAST CANCER
     Dosage: 2.5 MG,DAILY
     Route: 048

REACTIONS (4)
  - Hypothalamo-pituitary disorder [Unknown]
  - Blood prolactin increased [Unknown]
  - Hyponatraemia [Unknown]
  - Blood antidiuretic hormone increased [Unknown]
